FAERS Safety Report 5467504-4 (Version None)
Quarter: 2007Q3

REPORT INFORMATION
  Report Type: 
  Country: None (occurrence: None)
  Receive Date: 20070921
  Receipt Date: 20070906
  Transmission Date: 20080115
  Serious: Yes (Other)
  Sender: FDA-Public Use
  Company Number: GXBR2007US010606

PATIENT
  Sex: Female

DRUGS (1)
  1. ZOLPIDEM [Suspect]
     Dosage: 10 MG

REACTIONS (2)
  - CONVULSION [None]
  - POOR QUALITY DRUG ADMINISTERED [None]
